FAERS Safety Report 16435779 (Version 1)
Quarter: 2019Q2

REPORT INFORMATION
  Report Type: Spontaneous
  Country: FR (occurrence: FR)
  Receive Date: 20190614
  Receipt Date: 20190614
  Transmission Date: 20190711
  Serious: Yes (Hospitalization)
  Sender: FDA-Public Use
  Company Number: PHHY2019FR135810

PATIENT
  Age: 43 Year
  Sex: Male
  Weight: 71 kg

DRUGS (2)
  1. OMEPRAZOLE SANDOZ [Suspect]
     Active Substance: OMEPRAZOLE
     Indication: ABDOMINAL PAIN UPPER
     Dosage: 20 MG, QD
     Route: 048
     Dates: start: 20190511, end: 20190516
  2. CARBOSYLANE [Suspect]
     Active Substance: ACTIVATED CHARCOAL\DIMETHICONE
     Indication: FUNCTIONAL GASTROINTESTINAL DISORDER
     Dosage: 6 DF, QD
     Route: 048
     Dates: start: 20190506, end: 20190516

REACTIONS (1)
  - Pancreatitis acute [Recovering/Resolving]

NARRATIVE: CASE EVENT DATE: 20190516
